FAERS Safety Report 6979609-7 (Version None)
Quarter: 2010Q3

REPORT INFORMATION
  Report Type: 
  Country: None (occurrence: None)
  Receive Date: 20100910
  Receipt Date: 20100910
  Transmission Date: 20110219
  Serious: Yes (Hospitalization)
  Sender: FDA-Public Use
  Company Number: None

PATIENT
  Sex: Female
  Weight: 26.36 kg

DRUGS (2)
  1. CARBOPLATIN [Suspect]
     Dosage: 110 MG
     Dates: end: 20100827
  2. TAXOL [Suspect]
     Dosage: 48 MG
     Dates: end: 20100827

REACTIONS (2)
  - RADIATION DYSPHAGIA [None]
  - RADIATION OESOPHAGITIS [None]
